FAERS Safety Report 23794406 (Version 1)
Quarter: 2024Q2

REPORT INFORMATION
  Report Type: Spontaneous
  Country: US (occurrence: US)
  Receive Date: 20240429
  Receipt Date: 20240429
  Transmission Date: 20240716
  Serious: No
  Sender: FDA-Public Use
  Company Number: US-SA-SAC20240423000104

PATIENT
  Sex: Male

DRUGS (4)
  1. DUPIXENT [Suspect]
     Active Substance: DUPILUMAB
     Indication: Dermatitis atopic
     Dosage: 300 MG, QOW
     Route: 058
  2. TRIAMCINOLONE [Concomitant]
     Active Substance: TRIAMCINOLONE
  3. VITAMIN D;VITAMIN E [Concomitant]
  4. ME [Concomitant]

REACTIONS (1)
  - Influenza [Unknown]
